FAERS Safety Report 5144114-X (Version None)
Quarter: 2006Q4

REPORT INFORMATION
  Report Type: 
  Country: None (occurrence: None)
  Receive Date: 20061106
  Receipt Date: 20060315
  Transmission Date: 20070319
  Serious: No
  Sender: FDA-Public Use
  Company Number: US-GLAXOSMITHKLINE-A0597681A

PATIENT
  Age: 14 Month
  Sex: Male

DRUGS (2)
  1. AMOXIL [Suspect]
     Dosage: 1TSP TWICE PER DAY
     Route: 048
  2. TYLENOL (CAPLET) [Concomitant]

REACTIONS (2)
  - RASH [None]
  - STOMACH DISCOMFORT [None]
